FAERS Safety Report 15097408 (Version 1)
Quarter: 2018Q3

REPORT INFORMATION
  Report Type: Other
  Country: US (occurrence: US)
  Receive Date: 20180702
  Receipt Date: 20180702
  Transmission Date: 20181010
  Serious: Yes (Other)
  Sender: FDA-Public Use
  Company Number: US-X-GEN PHARMACEUTICALS, INC-2051173

PATIENT
  Age: 47 Year
  Sex: Female

DRUGS (1)
  1. STREPTOMYCIN [Suspect]
     Active Substance: STREPTOMYCIN\STREPTOMYCIN SULFATE

REACTIONS (1)
  - Hypersensitivity [Unknown]
